FAERS Safety Report 16348941 (Version 1)
Quarter: 2019Q2

REPORT INFORMATION
  Report Type: Spontaneous
  Country: US (occurrence: US)
  Receive Date: 20190418
  Receipt Date: 20190418
  Transmission Date: 20190711
  Serious: No
  Sender: FDA-Public Use
  Company Number: None

PATIENT
  Age: 56 Year
  Sex: Male

DRUGS (1)
  1. TAFINLAR [Suspect]
     Active Substance: DABRAFENIB MESYLATE
     Dates: start: 20181212

REACTIONS (5)
  - Vomiting [None]
  - Chills [None]
  - Pyrexia [None]
  - Vision blurred [None]
  - Migraine [None]

NARRATIVE: CASE EVENT DATE: 20190404
